FAERS Safety Report 5705104-9 (Version None)
Quarter: 2008Q2

REPORT INFORMATION
  Report Type: 
  Country: None (occurrence: None)
  Receive Date: 20080410
  Receipt Date: 20080331
  Transmission Date: 20081010
  Serious: Yes (Hospitalization)
  Sender: FDA-Public Use
  Company Number: 231656J08USA

PATIENT
  Age: 54 Year
  Sex: Female
  Weight: 52.1637 kg

DRUGS (5)
  1. REBIF [Suspect]
     Indication: MULTIPLE SCLEROSIS
     Dosage: NOT REPORTED, NOT REPORTED, NOT REPORTED
     Dates: start: 20070101, end: 20080101
  2. PROVIGIL [Concomitant]
  3. BACLOFEN [Concomitant]
  4. FLORATEEN (ALL OTHER THERAPEUTIC PRODUCTS) [Concomitant]
  5. FEROZA (ALL OTHER THERAPEUTIC PRODUCTS) [Concomitant]

REACTIONS (2)
  - GALLBLADDER DISORDER [None]
  - PANCREATITIS [None]
